FAERS Safety Report 4612247-X (Version None)
Quarter: 2005Q2

REPORT INFORMATION
  Report Type: 
  Country: None (occurrence: None)
  Receive Date: 20050308
  Receipt Date: 20041119
  Transmission Date: 20051028
  Serious: Yes (Other)
  Sender: FDA-Public Use
  Company Number: 2004UW23892

PATIENT
  Age: 62 Year
  Sex: Female
  Weight: 65.77 kg

DRUGS (6)
  1. CRESTOR [Suspect]
     Indication: HYPERCHOLESTEROLAEMIA
     Dosage: 10 MG PO
     Route: 048
     Dates: start: 20041018
  2. METHOTREXATE [Concomitant]
  3. HYZAAR [Concomitant]
  4. CELEBREX [Concomitant]
  5. SULFASALAZINE [Concomitant]
  6. TOPROL-XL [Concomitant]

REACTIONS (1)
  - HYPOAESTHESIA [None]
